FAERS Safety Report 8120682-0 (Version None)
Quarter: 2012Q1

REPORT INFORMATION
  Report Type: 
  Country: None (occurrence: None)
  Receive Date: 20120207
  Receipt Date: 20120126
  Transmission Date: 20120608
  Serious: Yes (Disabling)
  Sender: FDA-Public Use
  Company Number: PHHY2012NL007296

PATIENT
  Sex: Male
  Weight: 98 kg

DRUGS (5)
  1. HYDROCHLOROTHIAZIDE [Concomitant]
     Dosage: 25 MG
  2. EZETIMIBE [Suspect]
     Dosage: 10 MG EZE AND 20 MG SIMVA
     Dates: end: 20120112
  3. DIOVAN [Suspect]
     Dosage: 40 MG
     Dates: start: 19750401, end: 20120112
  4. LABETALOL HCL [Suspect]
     Dosage: 100 MG
     Dates: start: 19750401, end: 20120112
  5. HYDROCHLOROTHIAZIDE [Concomitant]
     Dosage: 12.5 MG

REACTIONS (12)
  - PROSTATIC DISORDER [None]
  - SALIVARY GLAND ENLARGEMENT [None]
  - LIVER DISORDER [None]
  - PHANTOM PAIN [None]
  - HYPOHIDROSIS [None]
  - EXOSTOSIS [None]
  - MYALGIA [None]
  - MALAISE [None]
  - HORMONE LEVEL ABNORMAL [None]
  - RENAL IMPAIRMENT [None]
  - JOINT DEPOSIT [None]
  - BLOOD INSULIN ABNORMAL [None]
